FAERS Safety Report 5275030-0 (Version None)
Quarter: 2007Q1

REPORT INFORMATION
  Report Type: 
  Country: None (occurrence: None)
  Receive Date: 20070326
  Receipt Date: 20070322
  Transmission Date: 20070707
  Serious: Yes (Hospitalization)
  Sender: FDA-Public Use
  Company Number: FR-SP-2007-00873

PATIENT
  Age: 60 Year
  Sex: Male

DRUGS (3)
  1. IMMUCYST [Suspect]
     Dates: start: 20070201
  2. IMMUCYST [Suspect]
     Dates: start: 20070201
  3. STATINS [Concomitant]

REACTIONS (7)
  - CELL DEATH [None]
  - CHOLESTASIS [None]
  - DYSURIA [None]
  - GENERAL PHYSICAL HEALTH DETERIORATION [None]
  - MALAISE [None]
  - POLLAKIURIA [None]
  - PYREXIA [None]
